FAERS Safety Report 13572580 (Version 1)
Quarter: 2017Q2

REPORT INFORMATION
  Report Type: Spontaneous
  Country: US (occurrence: US)
  Receive Date: 20170523
  Receipt Date: 20170523
  Transmission Date: 20170830
  Serious: No
  Sender: FDA-Public Use
  Company Number: US-JNJFOC-20170507204

PATIENT
  Age: 82 Year
  Sex: Male

DRUGS (8)
  1. LOSARTAN. [Concomitant]
     Active Substance: LOSARTAN
  2. IMBRUVICA [Suspect]
     Active Substance: IBRUTINIB
     Indication: PRODUCT USED FOR UNKNOWN INDICATION
     Route: 065
     Dates: start: 20170131
  3. ASPIRIN. [Concomitant]
     Active Substance: ASPIRIN
  4. COLECALCIFEROL [Concomitant]
     Active Substance: CHOLECALCIFEROL
  5. IRON [Concomitant]
     Active Substance: IRON
  6. FISH OIL [Concomitant]
     Active Substance: FISH OIL
  7. HCTZ [Concomitant]
     Active Substance: HYDROCHLOROTHIAZIDE
  8. MUCINEX [Concomitant]
     Active Substance: GUAIFENESIN

REACTIONS (2)
  - Swelling [Unknown]
  - Diarrhoea [Unknown]

NARRATIVE: CASE EVENT DATE: 201704
